FAERS Safety Report 15215952 (Version 3)
Quarter: 2019Q1

REPORT INFORMATION
  Report Type: Spontaneous
  Country: US (occurrence: US)
  Receive Date: 20180730
  Receipt Date: 20190328
  Transmission Date: 20190417
  Serious: No
  Sender: FDA-Public Use
  Company Number: US-ASTRAZENECA-2018SE95954

PATIENT
  Sex: Female
  Weight: 72.6 kg

DRUGS (4)
  1. TUDORZA PRESSAIR [Suspect]
     Active Substance: ACLIDINIUM BROMIDE
     Indication: CHRONIC OBSTRUCTIVE PULMONARY DISEASE
     Route: 055
     Dates: start: 2016
  2. BREO ELLIPTA [Concomitant]
     Active Substance: FLUTICASONE FUROATE\VILANTEROL TRIFENATATE
     Indication: CHRONIC OBSTRUCTIVE PULMONARY DISEASE
     Route: 055
     Dates: start: 2016
  3. PRO AIR INHALER [Concomitant]
     Indication: ILL-DEFINED DISORDER
     Dosage: AS REQUIRED
     Route: 055
  4. PRO AIR INHALER [Concomitant]
     Indication: ILL-DEFINED DISORDER
     Dosage: PRO AIR AS REQUIRED

REACTIONS (4)
  - Body height decreased [Unknown]
  - Condition aggravated [Unknown]
  - Device malfunction [Unknown]
  - Device failure [Unknown]
